FAERS Safety Report 4521091-3 (Version None)
Quarter: 2004Q4

REPORT INFORMATION
  Report Type: 
  Country: None (occurrence: None)
  Receive Date: 20041203
  Receipt Date: 20041117
  Transmission Date: 20050328
  Serious: Yes (Life-Threatening, Hospitalization)
  Sender: FDA-Public Use
  Company Number: PHNR2004AU01663

PATIENT
  Age: 86 Year
  Sex: Female
  Weight: 58.0151 kg

DRUGS (1)
  1. VISUDYNE [Suspect]
     Dates: start: 20041111, end: 20041111

REACTIONS (1)
  - SUICIDE ATTEMPT [None]
